FAERS Safety Report 10853566 (Version 1)
Quarter: 2015Q1

REPORT INFORMATION
  Report Type: Spontaneous
  Country: US (occurrence: None)
  Receive Date: 20150218
  Receipt Date: 20150218
  Transmission Date: 20150721
  Serious: Yes (Other)
  Sender: FDA-Public Use
  Company Number: None

PATIENT
  Age: 35 Year
  Sex: Female
  Weight: 63.5 kg

DRUGS (3)
  1. ROBAXIN [Suspect]
     Active Substance: METHOCARBAMOL
     Indication: MUSCULOSKELETAL DISORDER
     Dosage: EVERY EIGHT HOURS  TAKEN BY MOUTH
     Route: 048
  2. ROBAXIN [Suspect]
     Active Substance: METHOCARBAMOL
     Indication: SCOLIOSIS
     Dosage: EVERY EIGHT HOURS  TAKEN BY MOUTH
     Route: 048
  3. ROBAXIN [Suspect]
     Active Substance: METHOCARBAMOL
     Indication: SCIATICA
     Dosage: EVERY EIGHT HOURS  TAKEN BY MOUTH
     Route: 048

REACTIONS (3)
  - Abdominal pain [None]
  - Abdominal discomfort [None]
  - Drug effect decreased [None]

NARRATIVE: CASE EVENT DATE: 20150203
